FAERS Safety Report 12126149 (Version 3)
Quarter: 2017Q1

REPORT INFORMATION
  Report Type: Spontaneous
  Country: US (occurrence: US)
  Receive Date: 20160229
  Receipt Date: 20170301
  Transmission Date: 20170428
  Serious: Yes (Hospitalization, Other)
  Sender: FDA-Public Use
  Company Number: US-ABBVIE-15P-163-1491466-00

PATIENT
  Age: 43 Year
  Sex: Male
  Weight: 147.55 kg

DRUGS (4)
  1. PLAVIX [Concomitant]
     Active Substance: CLOPIDOGREL BISULFATE
     Indication: ANTICOAGULANT THERAPY
     Route: 065
     Dates: start: 2011, end: 2013
  2. RAMIPRIL. [Concomitant]
     Active Substance: RAMIPRIL
     Indication: HYPERTENSION
     Route: 065
     Dates: start: 201111
  3. AMLODIPINE [Concomitant]
     Active Substance: AMLODIPINE BESYLATE
     Indication: HYPERTENSION
     Route: 065
     Dates: start: 2011, end: 2013
  4. ANDROGEL [Suspect]
     Active Substance: TESTOSTERONE
     Indication: ANDROGEN REPLACEMENT THERAPY
     Route: 061
     Dates: start: 200812, end: 201302

REACTIONS (13)
  - Gait disturbance [Unknown]
  - Arthropathy [Unknown]
  - Cognitive disorder [Unknown]
  - Foot deformity [Unknown]
  - Sleep disorder [Unknown]
  - Aphasia [Unknown]
  - Cerebrovascular accident [Unknown]
  - Eyelid function disorder [Unknown]
  - Asthenia [Unknown]
  - Amnesia [Unknown]
  - Tinnitus [Unknown]
  - Visual field defect [Unknown]
  - Memory impairment [Unknown]

NARRATIVE: CASE EVENT DATE: 20111031
